FAERS Safety Report 6780318-8 (Version None)
Quarter: 2010Q2

REPORT INFORMATION
  Report Type: 
  Country: None (occurrence: None)
  Receive Date: 20100618
  Receipt Date: 20100611
  Transmission Date: 20101027
  Serious: Yes (Hospitalization, Other)
  Sender: FDA-Public Use
  Company Number: US-AMGEN-QUU416377

PATIENT
  Sex: Female
  Weight: 77.1 kg

DRUGS (5)
  1. NPLATE [Suspect]
     Indication: DRUG USE FOR UNKNOWN INDICATION
     Route: 058
     Dates: start: 20100428, end: 20100525
  2. CORTICOSTEROIDS [Concomitant]
     Dates: start: 20100401
  3. REVLIMID [Concomitant]
     Dates: start: 20100406, end: 20100601
  4. PREDNISONE [Concomitant]
     Dates: start: 20100511, end: 20100521
  5. DEXAMETHASONE [Concomitant]
     Dates: start: 20100522, end: 20100525

REACTIONS (5)
  - BONE MARROW RETICULIN FIBROSIS [None]
  - CHRONIC LYMPHOCYTIC LEUKAEMIA TRANSFORMATION [None]
  - DRUG INEFFECTIVE [None]
  - MYELODYSPLASTIC SYNDROME TRANSFORMATION [None]
  - REFRACTORY ANAEMIA WITH AN EXCESS OF BLASTS [None]
